FAERS Safety Report 9551531 (Version 2)
Quarter: 2015Q1

REPORT INFORMATION
  Report Type: Spontaneous
  Country: US (occurrence: None)
  Receive Date: 20130724
  Receipt Date: 20150331
  Transmission Date: 20150721
  Serious: Yes (Hospitalization)
  Sender: FDA-Public Use
  Company Number: PHEH2012US015396

PATIENT
  Age: 71 Year
  Sex: Male

DRUGS (4)
  1. AMLODIPINE [Concomitant]
     Active Substance: AMLODIPINE BESYLATE
  2. ATORVASTTIN (ATORVASTAIN) [Concomitant]
  3. AFINITOR [Suspect]
     Active Substance: EVEROLIMUS
     Indication: METASTATIC RENAL CELL CARCINOMA
     Route: 048
     Dates: start: 20120319, end: 20120730
  4. SIMVASTATIN (SIMVASATIN) [Concomitant]

REACTIONS (7)
  - Blood creatine increased [None]
  - Anaemia [None]
  - Lip haemorrhage [None]
  - Malignant neoplasm progression [None]
  - Joint swelling [None]
  - Neoplasm progression [None]
  - Chapped lips [None]

NARRATIVE: CASE EVENT DATE: 20120810
